FAERS Safety Report 24028959 (Version 1)
Quarter: 2024Q2

REPORT INFORMATION
  Report Type: Spontaneous
  Country: US (occurrence: US)
  Receive Date: 20240628
  Receipt Date: 20240628
  Transmission Date: 20240715
  Serious: Yes (Other)
  Sender: FDA-Public Use
  Company Number: US-009507513-2406USA006732

PATIENT

DRUGS (4)
  1. PRIMAXIN IV [Suspect]
     Active Substance: CILASTATIN SODIUM\IMIPENEM
     Indication: Mycobacterium abscessus infection
     Dosage: UNK
  2. CEFDINIR [Suspect]
     Active Substance: CEFDINIR
     Indication: Mycobacterium abscessus infection
     Dosage: UNK
  3. CLARITHROMYCIN [Concomitant]
     Active Substance: CLARITHROMYCIN
     Indication: Mycobacterium abscessus infection
     Dosage: UNK
  4. BEDAQUILINE [Concomitant]
     Active Substance: BEDAQUILINE
     Indication: Mycobacterium abscessus infection
     Dosage: UNK

REACTIONS (2)
  - Intracranial pressure increased [Unknown]
  - Off label use [Unknown]
